FAERS Safety Report 18724194 (Version 1)
Quarter: 2021Q1

REPORT INFORMATION
  Report Type: Spontaneous
  Country: US (occurrence: US)
  Receive Date: 20210111
  Receipt Date: 20210111
  Transmission Date: 20210419
  Serious: Yes (Hospitalization, Other)
  Sender: FDA-Public Use
  Company Number: US-LUPIN PHARMACEUTICALS INC.-2020-11699

PATIENT
  Age: 58 Year
  Sex: Female

DRUGS (3)
  1. CEFUROXIME AXETIL. [Suspect]
     Active Substance: CEFUROXIME AXETIL
     Indication: INFECTION
     Dosage: 3 GRAM (A SPACER CONTAINING VANCOMYCIN 4G, CEFUROXIME 3G AND TOBRAMYCIN 4.8G WAS PLACED IN TO THE DE
     Route: 065
  2. TOBRAMYCIN. [Suspect]
     Active Substance: TOBRAMYCIN
     Indication: INFECTION
     Dosage: 4.8 GRAM (A SPACER CONTAINING VANCOMYCIN 4G, CEFUROXIME 3G AND TOBRAMYCIN 4.8G WAS PLACED IN TO THE
     Route: 065
  3. VANCOMYCIN [Suspect]
     Active Substance: VANCOMYCIN
     Indication: INFECTION
     Dosage: 4 GRAM (A SPACER CONTAINING VANCOMYCIN 4G, CEFUROXIME 3G AND TOBRAMYCIN 4.8G WAS PLACED IN TO THE DE
     Route: 065

REACTIONS (1)
  - Acute kidney injury [Unknown]
